FAERS Safety Report 7415041-X (Version None)
Quarter: 2011Q2

REPORT INFORMATION
  Report Type: 
  Country: None (occurrence: None)
  Receive Date: 20110414
  Receipt Date: 20110316
  Transmission Date: 20111010
  Serious: No
  Sender: FDA-Public Use
  Company Number: JP-ROCHE-764008

PATIENT
  Age: 52 Year
  Sex: Male

DRUGS (2)
  1. RIBAVIRIN [Suspect]
     Route: 065
  2. PEGINTERFERON ALFA-2B [Suspect]
     Route: 065

REACTIONS (1)
  - TYPE 1 DIABETES MELLITUS [None]
